FAERS Safety Report 13823040 (Version 1)
Quarter: 2017Q3

REPORT INFORMATION
  Report Type: Spontaneous
  Country: BE (occurrence: BE)
  Receive Date: 20170801
  Receipt Date: 20170801
  Transmission Date: 20171127
  Serious: Yes (Other)
  Sender: FDA-Public Use
  Company Number: BE-IMPAX LABORATORIES, INC-2017-IPXL-02268

PATIENT
  Sex: Female

DRUGS (1)
  1. DIVALPROEX SODIUM ER [Suspect]
     Active Substance: DIVALPROEX SODIUM
     Indication: EPILEPSY
     Dosage: 500 MG, 3 /DAY
     Route: 065

REACTIONS (5)
  - Delusion [Unknown]
  - Gastroenteritis [Unknown]
  - Premature labour [Unknown]
  - Epilepsy [Unknown]
  - Maternal exposure during pregnancy [Unknown]
